FAERS Safety Report 6529159-7 (Version None)
Quarter: 2010Q1

REPORT INFORMATION
  Report Type: 
  Country: None (occurrence: None)
  Receive Date: 20100107
  Receipt Date: 20100104
  Transmission Date: 20100710
  Serious: Yes (Other)
  Sender: FDA-Public Use
  Company Number: US-RB-000105-10

PATIENT
  Age: 67 Year
  Sex: Female

DRUGS (1)
  1. MUCINEX DM [Suspect]
     Route: 048
     Dates: start: 20100101

REACTIONS (2)
  - BLOOD PRESSURE INCREASED [None]
  - DIZZINESS [None]
